FAERS Safety Report 6731371-9 (Version None)
Quarter: 2010Q2

REPORT INFORMATION
  Report Type: 
  Country: None (occurrence: None)
  Receive Date: 20100518
  Receipt Date: 20100518
  Transmission Date: 20101027
  Serious: Yes (Life-Threatening)
  Sender: FDA-Public Use
  Company Number: None

PATIENT
  Sex: Male
  Weight: 88.9 kg

DRUGS (5)
  1. SODIUM STIBOGLUCONATE [Suspect]
     Indication: ANGIOSARCOMA
     Dosage: 2400MG DAILY 4/19-4/22/10 IV
     Route: 042
     Dates: start: 20100419, end: 20100422
  2. IFNA2B [Concomitant]
  3. ASPHALIN [Concomitant]
  4. VERIBLASTINE [Concomitant]
  5. DACARBAZINE [Concomitant]

REACTIONS (2)
  - BLOOD CULTURE POSITIVE [None]
  - STAPHYLOCOCCAL INFECTION [None]
